FAERS Safety Report 18228164 (Version 1)
Quarter: 2020Q3

REPORT INFORMATION
  Report Type: Spontaneous
  Country: FR (occurrence: FR)
  Receive Date: 20200903
  Receipt Date: 20200903
  Transmission Date: 20201103
  Serious: Yes (Hospitalization)
  Sender: FDA-Public Use
  Company Number: FR-TEVA-2020-FR-1821957

PATIENT
  Age: 71 Year
  Sex: Male
  Weight: 47 kg

DRUGS (12)
  1. LINEZOLIDE [Concomitant]
     Active Substance: LINEZOLID
     Dates: start: 20200131
  2. NEUPOGEN [Concomitant]
     Active Substance: FILGRASTIM
     Route: 058
  3. ATOVAQUONE. [Concomitant]
     Active Substance: ATOVAQUONE
     Route: 048
  4. LAROXYL [Concomitant]
     Active Substance: AMITRIPTYLINE HYDROCHLORIDE
     Route: 048
  5. ZELITREX [Concomitant]
     Active Substance: VALACYCLOVIR HYDROCHLORIDE
     Route: 048
  6. HYDROCORTISONE. [Concomitant]
     Active Substance: HYDROCORTISONE
     Route: 048
  7. CARDENSIEL [Concomitant]
     Active Substance: BISOPROLOL FUMARATE
     Route: 048
  8. RIVOTRIL [Concomitant]
     Active Substance: CLONAZEPAM
     Route: 048
  9. LYRICA [Concomitant]
     Active Substance: PREGABALIN
     Route: 048
  10. CIPROFLOXACINE [Suspect]
     Active Substance: CIPROFLOXACIN
     Indication: SINUSITIS ASPERGILLUS
     Dosage: 1000  MG
     Route: 048
     Dates: start: 20200131, end: 20200204
  11. CEFEPIME [Suspect]
     Active Substance: CEFEPIME HYDROCHLORIDE
     Indication: SINUSITIS ASPERGILLUS
     Dosage: 4 GRAM
     Route: 041
     Dates: start: 20200131, end: 20200204
  12. VFEND [Concomitant]
     Active Substance: VORICONAZOLE
     Dates: start: 20191129

REACTIONS (1)
  - Generalised tonic-clonic seizure [Recovered/Resolved]

NARRATIVE: CASE EVENT DATE: 20200204
